FAERS Safety Report 21442546 (Version 3)
Quarter: 2022Q4

REPORT INFORMATION
  Report Type: Spontaneous
  Country: NL (occurrence: NL)
  Receive Date: 20221011
  Receipt Date: 20221115
  Transmission Date: 20230113
  Serious: Yes (Hospitalization, Other)
  Sender: FDA-Public Use
  Company Number: NL-ROCHE-3183274

PATIENT
  Age: 76 Year
  Sex: Male

DRUGS (5)
  1. BEVACIZUMAB [Suspect]
     Active Substance: BEVACIZUMAB
     Indication: Colorectal cancer metastatic
     Dosage: UNK
     Route: 065
     Dates: start: 20220819
  2. BEVACIZUMAB [Suspect]
     Active Substance: BEVACIZUMAB
     Dosage: PATIENT RECEIVED 2 CYCLE
     Dates: start: 20220914
  3. OXALIPLATIN [Suspect]
     Active Substance: OXALIPLATIN
     Indication: Colorectal cancer metastatic
     Dosage: UNK
     Route: 065
     Dates: start: 20220819
  4. OXALIPLATIN [Suspect]
     Active Substance: OXALIPLATIN
     Dosage: PATIENT RECEIVED 2 CYCLE
     Dates: start: 20220914
  5. CAPECITABINE [Suspect]
     Active Substance: CAPECITABINE
     Indication: Colorectal cancer metastatic
     Dosage: UNK
     Route: 048
     Dates: start: 20220819

REACTIONS (5)
  - Dyspnoea [Recovered/Resolved]
  - Blood lactic acid increased [Recovered/Resolved]
  - Myocardial infarction [Unknown]
  - Dyspnoea [Recovered/Resolved]
  - Cardiac disorder [Unknown]

NARRATIVE: CASE EVENT DATE: 20220914
